FAERS Safety Report 12256229 (Version 1)
Quarter: 2016Q2

REPORT INFORMATION
  Report Type: Spontaneous
  Country: US (occurrence: US)
  Receive Date: 20160412
  Receipt Date: 20160412
  Transmission Date: 20160815
  Serious: No
  Sender: FDA-Public Use
  Company Number: US-009507513-1603USA012601

PATIENT
  Sex: Female

DRUGS (1)
  1. JANUVIA [Suspect]
     Active Substance: SITAGLIPTIN PHOSPHATE
     Indication: DIABETES MELLITUS
     Dosage: TAKING 100 MG TWO WEEKS AGO, DID NOT CONFIRM IF THE PATIENT WAS TAKING THE SAME DOSAGE WHEN STOPPED
     Route: 048
     Dates: end: 201603

REACTIONS (1)
  - Arthralgia [Recovering/Resolving]
